FAERS Safety Report 9272113 (Version 2)
Quarter: 2013Q3

REPORT INFORMATION
  Report Type: Spontaneous
  Country: DE (occurrence: DE)
  Receive Date: 20130506
  Receipt Date: 20130708
  Transmission Date: 20140515
  Serious: Yes (Other)
  Sender: FDA-Public Use
  Company Number: DE-JNJFOC-20130500752

PATIENT
  Age: 71 Year
  Sex: Female
  Weight: 66 kg

DRUGS (9)
  1. XARELTO [Suspect]
     Indication: ATRIAL FIBRILLATION
     Route: 048
     Dates: start: 20120617, end: 20121219
  2. SIMVASTATIN [Concomitant]
     Dosage: JADEN 2 TAG
     Route: 065
  3. AMLODIPINE [Concomitant]
     Dosage: 1-0-1
     Route: 065
  4. LANTUS [Concomitant]
     Dosage: 22 IE
     Route: 065
  5. EUTHYROX [Concomitant]
     Dosage: 1-0-0
     Route: 065
  6. BISOPROLOL FUMARATE [Concomitant]
     Dosage: 1/2-0-1/2
     Route: 065
  7. GLIMEPIRIDE [Concomitant]
     Dosage: 0-1-0
     Route: 065
  8. VALSARTAN [Concomitant]
     Dosage: 1-0-0
     Route: 065
  9. GALENIC /HYDROCHLOROTHIAZIDE/VALSARTAN/ [Concomitant]
     Dosage: 1-0-0
     Route: 065

REACTIONS (2)
  - Transaminases increased [Recovered/Resolved]
  - Serum ferritin increased [Recovered/Resolved]
